FAERS Safety Report 7542313-0 (Version None)
Quarter: 2011Q2

REPORT INFORMATION
  Report Type: 
  Country: None (occurrence: None)
  Receive Date: 20110606
  Receipt Date: 20110517
  Transmission Date: 20111010
  Serious: Yes (Hospitalization)
  Sender: FDA-Public Use
  Company Number: 2011-00547

PATIENT
  Age: 74 Year
  Sex: Female

DRUGS (2)
  1. SIMVASTATIN [Suspect]
     Indication: BLOOD CHOLESTEROL INCREASED
     Dosage: 20 MG (20 MG,1 IN 1 D); 40 MG (40 MG,1 IN 1 D)
  2. SIMVASTATIN [Suspect]
     Indication: HYPERTENSION
     Dosage: 20 MG (20 MG,1 IN 1 D); 40 MG (40 MG,1 IN 1 D)

REACTIONS (1)
  - RHABDOMYOLYSIS [None]
